FAERS Safety Report 6055298-3 (Version None)
Quarter: 2009Q1

REPORT INFORMATION
  Report Type: 
  Country: None (occurrence: None)
  Receive Date: 20090128
  Receipt Date: 20090116
  Transmission Date: 20090719
  Serious: Yes (Disabling, Other)
  Sender: FDA-Public Use
  Company Number: GB-PFIZER INC-2008155832

PATIENT

DRUGS (6)
  1. LYRICA [Suspect]
     Indication: NEURALGIA
     Dosage: 300 MG, 2X/DAY
     Route: 048
     Dates: end: 20081218
  2. LYRICA [Suspect]
     Indication: SCIATICA
  3. OXYCONTIN [Concomitant]
     Indication: SCOLIOSIS
     Dosage: 30 MG, 2X/DAY
     Route: 048
  4. CHLORAL HYDRATE [Concomitant]
     Dosage: UNK
     Route: 048
  5. DALMANE [Concomitant]
     Indication: INSOMNIA
     Dosage: UNK
     Route: 048
  6. DALMANE [Concomitant]
     Indication: BACK PAIN

REACTIONS (3)
  - SENSORY LOSS [None]
  - SOMNOLENCE [None]
  - STRESS URINARY INCONTINENCE [None]
